FAERS Safety Report 7060350-X (Version None)
Quarter: 2010Q4

REPORT INFORMATION
  Report Type: 
  Country: None (occurrence: None)
  Receive Date: 20101025
  Receipt Date: 20101012
  Transmission Date: 20110411
  Serious: Yes (Hospitalization)
  Sender: FDA-Public Use
  Company Number: B0678884A

PATIENT
  Age: 60 Year
  Sex: Female

DRUGS (16)
  1. AMPICILLIN SODIUM/SULBACTAM SODIUM [Suspect]
     Indication: PNEUMONIA
     Route: 048
     Dates: start: 20100928, end: 20101003
  2. SILDENAFIL CITRATE [Suspect]
     Indication: PULMONARY HYPERTENSION
     Route: 048
     Dates: start: 20100915
  3. BUMETANIDE [Concomitant]
  4. LANSOPRAZOLE [Concomitant]
  5. PAROXETINE HCL [Concomitant]
  6. TIOTROPIUM BROMIDE [Concomitant]
  7. SALMETEROL [Concomitant]
  8. SALBUTAMOL [Concomitant]
  9. BENDROFLUMETHIAZIDE [Concomitant]
  10. SODIUM BICARBONATE [Concomitant]
  11. ZOPICLONE [Concomitant]
  12. ASPIRIN [Concomitant]
  13. PARACETAMOL [Concomitant]
  14. IPRATROPIUM BROMIDE [Concomitant]
  15. CODEINE PHOSPHATE [Concomitant]
  16. AQUEOUS CREAM [Concomitant]

REACTIONS (1)
  - DERMATITIS EXFOLIATIVE [None]
